FAERS Safety Report 7427869-0 (Version None)
Quarter: 2011Q2

REPORT INFORMATION
  Report Type: 
  Country: None (occurrence: None)
  Receive Date: 20110421
  Receipt Date: 20110408
  Transmission Date: 20111010
  Serious: Yes (Hospitalization, Other)
  Sender: FDA-Public Use
  Company Number: FR-ELI_LILLY_AND_COMPANY-FR201103004384

PATIENT
  Sex: Female

DRUGS (4)
  1. CALCIUM [Concomitant]
  2. ASPEGIC 325 [Concomitant]
  3. RALOXIFENE HYDROCHLORIDE [Suspect]
     Indication: OSTEOPOROSIS
     Dosage: 60 MG, QD
     Route: 048
     Dates: start: 20050101, end: 20110124
  4. CHONDROSULF [Concomitant]

REACTIONS (3)
  - CYTOLYTIC HEPATITIS [None]
  - PULMONARY INFARCTION [None]
  - PULMONARY EMBOLISM [None]
